FAERS Safety Report 21222813 (Version 1)
Quarter: 2022Q3

REPORT INFORMATION
  Report Type: Spontaneous
  Country: US (occurrence: None)
  Receive Date: 20220816
  Receipt Date: 20220816
  Transmission Date: 20221027
  Serious: No
  Sender: FDA-Public Use
  Company Number: None

PATIENT
  Sex: Male

DRUGS (1)
  1. TOBRAMYCIN [Suspect]
     Active Substance: TOBRAMYCIN
     Indication: Lower respiratory tract infection
     Dosage: FREQUENCY : TWICE A DAY;?
     Route: 055
     Dates: start: 20200218

REACTIONS (1)
  - Hospitalisation [None]
